FAERS Safety Report 17986660 (Version 1)
Quarter: 2020Q3

REPORT INFORMATION
  Report Type: Spontaneous
  Country: US (occurrence: US)
  Receive Date: 20200706
  Receipt Date: 20200706
  Transmission Date: 20201103
  Serious: No
  Sender: FDA-Public Use
  Company Number: US-PURDUE-USA-2019-0149507

PATIENT
  Age: 71 Year
  Sex: Female
  Weight: 49.89 kg

DRUGS (5)
  1. DRONABINOL CAPSULES [Suspect]
     Active Substance: DRONABINOL
     Indication: NEOPLASM MALIGNANT
     Dosage: 10 MG, BID
     Route: 048
     Dates: start: 201911, end: 201912
  2. MORPHINE SULFATE (SIMILAR TO NDA 19?516) [Concomitant]
     Active Substance: MORPHINE SULFATE
     Indication: PRODUCT USED FOR UNKNOWN INDICATION
     Route: 048
  3. VITAMINS NOS [Concomitant]
     Active Substance: VITAMINS
     Indication: PRODUCT USED FOR UNKNOWN INDICATION
     Route: 048
  4. MAGNESIUM [Concomitant]
     Active Substance: MAGNESIUM
     Route: 065
  5. LEVAQUIN [Concomitant]
     Active Substance: LEVOFLOXACIN
     Indication: PRODUCT USED FOR UNKNOWN INDICATION
     Route: 065

REACTIONS (8)
  - Weight increased [Recovered/Resolved]
  - Somnolence [Unknown]
  - Abdominal pain upper [Unknown]
  - Food craving [Unknown]
  - Weight decreased [Unknown]
  - Hunger [Unknown]
  - Drug ineffective [Unknown]
  - Unevaluable event [Unknown]

NARRATIVE: CASE EVENT DATE: 201911
